FAERS Safety Report 6944729-X (Version None)
Quarter: 2010Q3

REPORT INFORMATION
  Report Type: 
  Country: None (occurrence: None)
  Receive Date: 20100827
  Receipt Date: 20100813
  Transmission Date: 20110219
  Serious: Yes (Hospitalization, Other)
  Sender: FDA-Public Use
  Company Number: PHHY2010BR53724

PATIENT
  Sex: Female

DRUGS (3)
  1. DIOVAN [Suspect]
     Indication: HYPERTENSION
     Dosage: UNK
  2. DIOVAN [Suspect]
     Dosage: 160 MG
  3. DIOVAN [Suspect]
     Dosage: 320 MG

REACTIONS (9)
  - BLOOD GLUCOSE INCREASED [None]
  - BLOOD PRESSURE INCREASED [None]
  - CATARACT [None]
  - CATARACT OPERATION [None]
  - PAIN [None]
  - TREATMENT NONCOMPLIANCE [None]
  - VISION BLURRED [None]
  - WEIGHT DECREASED [None]
  - WOUND [None]
